FAERS Safety Report 5251588-2 (Version None)
Quarter: 2007Q1

REPORT INFORMATION
  Report Type: 
  Country: None (occurrence: None)
  Receive Date: 20070228
  Receipt Date: 20061003
  Transmission Date: 20070707
  Serious: Yes (Other)
  Sender: FDA-Public Use
  Company Number: US-GLAXOSMITHKLINE-A0621011A

PATIENT
  Age: 35 Year
  Sex: Male
  Weight: 88.6 kg

DRUGS (3)
  1. LAMICTAL [Suspect]
     Indication: BIPOLAR DISORDER
     Route: 048
     Dates: end: 20060826
  2. LEXAPRO [Concomitant]
     Dosage: 30MG PER DAY
     Route: 048
  3. TRAZODONE HCL [Concomitant]
     Dosage: 100MG AT NIGHT

REACTIONS (2)
  - RASH [None]
  - STEVENS-JOHNSON SYNDROME [None]
